FAERS Safety Report 19179785 (Version 1)
Quarter: 2021Q2

REPORT INFORMATION
  Report Type: Spontaneous
  Country: US (occurrence: US)
  Receive Date: 20210426
  Receipt Date: 20210426
  Transmission Date: 20210717
  Serious: Yes (Hospitalization)
  Sender: FDA-Public Use
  Company Number: None

PATIENT
  Age: 19 Year
  Sex: Male

DRUGS (3)
  1. ASPIRIN. [Concomitant]
     Active Substance: ASPIRIN
  2. SIROLIMUS. [Concomitant]
     Active Substance: SIROLIMUS
  3. ENVARSUS XR [Suspect]
     Active Substance: TACROLIMUS
     Indication: HEART TRANSPLANT
     Route: 048
     Dates: start: 20190725

REACTIONS (3)
  - Biopsy [None]
  - Therapy interrupted [None]
  - Catheterisation cardiac [None]

NARRATIVE: CASE EVENT DATE: 20210409
